FAERS Safety Report 16011590 (Version 1)
Quarter: 2019Q1

REPORT INFORMATION
  Report Type: Spontaneous
  Country: US (occurrence: US)
  Receive Date: 20190130
  Receipt Date: 20190130
  Transmission Date: 20190418
  Serious: No
  Sender: FDA-Public Use
  Company Number: None

PATIENT
  Age: 52 Year
  Sex: Female

DRUGS (4)
  1. ZOLADEX [Concomitant]
     Active Substance: GOSERELIN ACETATE
  2. SYNTHROID [Concomitant]
     Active Substance: LEVOTHYROXINE SODIUM
  3. KISQALI [Suspect]
     Active Substance: RIBOCICLIB
     Route: 048
     Dates: start: 201901
  4. DIAZEPAM. [Concomitant]
     Active Substance: DIAZEPAM

REACTIONS (1)
  - Alopecia [None]

NARRATIVE: CASE EVENT DATE: 20190130
